FAERS Safety Report 10152183 (Version 1)
Quarter: 2014Q2

REPORT INFORMATION
  Report Type: Spontaneous
  Country: TR (occurrence: None)
  Receive Date: 20140501
  Receipt Date: 20140501
  Transmission Date: 20141212
  Serious: Yes (Other)
  Sender: FDA-Public Use
  Company Number: NSR_01545_2014

PATIENT
  Age: 21 Month
  Sex: Male

DRUGS (1)
  1. ALLOPURINOL (ALLOPURINOL) [Suspect]
     Indication: TOTAL HYPOXANTHINE-GUANINE PHOSPHORIBOSYL TRANSFERASE DEFICIENCY
     Dosage: UNKNOWN - UNTIL NOT CONTINUING, (10 DFM [KG,DAY])

REACTIONS (4)
  - Renal failure acute [None]
  - Obstructive uropathy [None]
  - Calculus bladder [None]
  - Calculus ureteric [None]
